FAERS Safety Report 9981131 (Version 4)
Quarter: 2014Q3

REPORT INFORMATION
  Report Type: Spontaneous
  Country: IT (occurrence: None)
  Receive Date: 20140305
  Receipt Date: 20140708
  Transmission Date: 20150326
  Serious: Yes (Hospitalization)
  Sender: FDA-Public Use
  Company Number: AUR-APL-2014-02242

PATIENT
  Age: 34 Year
  Sex: Female

DRUGS (6)
  1. SERTRALINE HYDROCHLORIDE (SERTRALINE HYDROCHLORIDE) [Concomitant]
     Active Substance: SERTRALINE HYDROCHLORIDE
  2. BROMAZEPAM (BROMAZEPAM) [Concomitant]
     Active Substance: BROMAZEPAM
  3. FLECAINIDE [Suspect]
     Active Substance: FLECAINIDE
     Indication: PRODUCT USED FOR UNKNOWN INDICATION
     Dosage: 300 MG, TOTAL
     Route: 048
     Dates: start: 20140121, end: 20140121
  4. SOTALOL HYDROCHLORIDE (SOTALOL HYDROCHLORIDE) [Concomitant]
     Active Substance: SOTALOL HYDROCHLORIDE
  5. MIRTAZAPINA [Suspect]
     Active Substance: MIRTAZAPINE
     Indication: PRODUCT USED FOR UNKNOWN INDICATION
     Dosage: (900 MG, TOTAL)
     Route: 048
     Dates: start: 20140121, end: 20140121
  6. BUSCOFEN (IBUPROFEN) [Concomitant]

REACTIONS (10)
  - Blood alcohol increased [None]
  - Laceration [None]
  - Hypotension [None]
  - Drug abuse [None]
  - Atrioventricular block first degree [None]
  - Electrocardiogram QRS complex prolonged [None]
  - Intentional self-injury [None]
  - Sopor [None]
  - Intentional overdose [None]
  - Toxicity to various agents [None]

NARRATIVE: CASE EVENT DATE: 20140121
